FAERS Safety Report 23160696 (Version 4)
Quarter: 2024Q3

REPORT INFORMATION
  Report Type: Spontaneous
  Country: US (occurrence: US)
  Receive Date: 20231108
  Receipt Date: 20240810
  Transmission Date: 20241017
  Serious: No
  Sender: SANOFI AVENTIS
  Company Number: US-SA-SAC20231030002404

PATIENT
  Age: 49 Year
  Sex: Female

DRUGS (2)
  1. DUPIXENT [Suspect]
     Active Substance: DUPILUMAB
     Indication: Eczema
     Dosage: 300 MG, QOW
     Route: 058
     Dates: start: 20230719
  2. DUPIXENT [Suspect]
     Active Substance: DUPILUMAB
     Indication: Dermatitis allergic
     Dosage: 300 MG, QW
     Route: 058

REACTIONS (13)
  - Skin haemorrhage [Not Recovered/Not Resolved]
  - Injection site vesicles [Unknown]
  - Skin fissures [Not Recovered/Not Resolved]
  - Injection site inflammation [Unknown]
  - Eczema [Not Recovered/Not Resolved]
  - Erythema [Unknown]
  - Dry skin [Unknown]
  - Skin exfoliation [Not Recovered/Not Resolved]
  - Injection site swelling [Unknown]
  - Drug ineffective [Unknown]
  - Product dose omission in error [Unknown]
  - Inappropriate schedule of product administration [Unknown]
  - Off label use [Unknown]

NARRATIVE: CASE EVENT DATE: 20240403
